FAERS Safety Report 5927683-9 (Version None)
Quarter: 2008Q4

REPORT INFORMATION
  Report Type: 
  Country: None (occurrence: None)
  Receive Date: 20081023
  Receipt Date: 20081014
  Transmission Date: 20090506
  Serious: Yes (Hospitalization)
  Sender: FDA-Public Use
  Company Number: US-AMGEN-QUU313488

PATIENT
  Age: 40 Year
  Sex: Female

DRUGS (2)
  1. EPOGEN [Suspect]
     Indication: DIALYSIS
     Route: 065
     Dates: start: 20040401
  2. ARANESP [Suspect]
     Indication: DIALYSIS
     Route: 065
     Dates: start: 20040101, end: 20050101

REACTIONS (3)
  - BLOOD IRON INCREASED [None]
  - HOSPITALISATION [None]
  - THERAPEUTIC RESPONSE DECREASED [None]
